FAERS Safety Report 23194105 (Version 1)
Quarter: 2023Q4

REPORT INFORMATION
  Report Type: Spontaneous
  Country: DE (occurrence: None)
  Receive Date: 20231117
  Receipt Date: 20231117
  Transmission Date: 20240110
  Serious: Yes (Hospitalization)
  Sender: FDA-Public Use
  Company Number: DE-drreddys-GER/GER/14/0039712

PATIENT
  Age: 69 Year
  Sex: Male

DRUGS (1)
  1. CAPECITABINE [Suspect]
     Active Substance: CAPECITABINE
     Indication: Rectal adenocarcinoma
     Route: 048

REACTIONS (13)
  - Monoparesis [Recovered/Resolved]
  - Radiation proctitis [Unknown]
  - Psychomotor retardation [Recovered/Resolved]
  - Vasogenic cerebral oedema [Recovered/Resolved]
  - Hyporeflexia [Recovered/Resolved]
  - Sensory disturbance [Recovered/Resolved]
  - Generalised tonic-clonic seizure [Recovered/Resolved]
  - Motor dysfunction [Recovered/Resolved]
  - Magnetic resonance imaging abnormal [Recovered/Resolved]
  - Paresis [Recovered/Resolved]
  - C-reactive protein increased [Recovered/Resolved]
  - Toxic encephalopathy [Recovered/Resolved]
  - Iron deficiency anaemia [Unknown]
